FAERS Safety Report 7945644-5 (Version None)
Quarter: 2011Q4

REPORT INFORMATION
  Report Type: 
  Country: None (occurrence: None)
  Receive Date: 20111129
  Receipt Date: 20111117
  Transmission Date: 20120403
  Serious: Yes (Other)
  Sender: FDA-Public Use
  Company Number: US-BAYER-2011-114086

PATIENT
  Sex: Male

DRUGS (17)
  1. ADVAIR DISKUS 100/50 [Concomitant]
  2. CRESTOR [Concomitant]
  3. ALLEGRA [Concomitant]
  4. NAPROXEN SODIUM [Concomitant]
  5. LISINOPRIL AND HYDROCHLOROTHIAZIDE [Concomitant]
  6. MELATONIN [Concomitant]
  7. SOFTENERS, EMOLLIENTS [Concomitant]
  8. CETIRIZINE HCL [Concomitant]
  9. FLAXSEED OIL [Concomitant]
  10. ASPIRIN [Suspect]
     Dosage: 81 MG, QD
     Route: 048
  11. FLUTICASONE PROPIONATE [Concomitant]
  12. CRANBERRY [Concomitant]
  13. SIMVASTATIN [Concomitant]
  14. FISH OIL [Concomitant]
  15. ASPIRIN [Suspect]
     Dosage: UNK, BOTTLE COUNT 24S
     Route: 048
  16. ASPIRIN [Concomitant]
  17. MULTI-VITAMIN [Concomitant]

REACTIONS (2)
  - WITHDRAWAL SYNDROME [None]
  - NO ADVERSE EVENT [None]
